FAERS Safety Report 24678508 (Version 1)
Quarter: 2024Q4

REPORT INFORMATION
  Report Type: Spontaneous
  Country: US (occurrence: US)
  Receive Date: 20241129
  Receipt Date: 20241129
  Transmission Date: 20250114
  Serious: Yes (Other)
  Sender: AMGEN
  Company Number: US-AMGEN-USASP2024231564

PATIENT
  Age: 62 Year
  Sex: Male

DRUGS (8)
  1. REPATHA [Suspect]
     Active Substance: EVOLOCUMAB
     Indication: Blood cholesterol increased
     Dosage: UNK
     Route: 065
  2. REPATHA [Suspect]
     Active Substance: EVOLOCUMAB
     Dosage: 140 MILLIGRAM, Q2WK
     Route: 065
     Dates: start: 2019
  3. ENBREL [Suspect]
     Active Substance: ETANERCEPT
     Indication: Blood cholesterol increased
     Dosage: 140 MILLIGRAM, QWK
     Route: 065
     Dates: start: 2023
  4. ENBREL [Suspect]
     Active Substance: ETANERCEPT
     Indication: Rheumatoid arthritis
  5. METHOTREXATE [Concomitant]
     Active Substance: METHOTREXATE
  6. HUMIRA [Concomitant]
     Active Substance: ADALIMUMAB
  7. RINVOQ [Concomitant]
     Active Substance: UPADACITINIB
  8. TYLENOL [Concomitant]
     Active Substance: ACETAMINOPHEN

REACTIONS (18)
  - Rheumatoid arthritis [Unknown]
  - Trigger finger [Unknown]
  - Rectal haemorrhage [Recovered/Resolved]
  - Loss of consciousness [Unknown]
  - Thrombosis [Unknown]
  - Syncope [Unknown]
  - Nasal injury [Unknown]
  - Lip injury [Unknown]
  - COVID-19 [Unknown]
  - Balance disorder [Unknown]
  - Asthenia [Unknown]
  - Lethargy [Unknown]
  - Impaired healing [Unknown]
  - Gastrointestinal disorder [Unknown]
  - Condition aggravated [Unknown]
  - Injection site haemorrhage [Unknown]
  - Injection site pain [Unknown]
  - Injection site erythema [Unknown]

NARRATIVE: CASE EVENT DATE: 20190101
